FAERS Safety Report 21777001 (Version 1)
Quarter: 2022Q4

REPORT INFORMATION
  Report Type: Spontaneous
  Country: JP (occurrence: JP)
  Receive Date: 20221226
  Receipt Date: 20221226
  Transmission Date: 20230113
  Serious: No
  Sender: FDA-Public Use
  Company Number: JP-SAMOHPHARM-2020000687

PATIENT

DRUGS (11)
  1. CYSTADANE [Suspect]
     Active Substance: BETAINE
     Indication: Methylenetetrahydrofolate reductase deficiency
     Dosage: 0.75 GRAM, QD
     Dates: start: 20180227, end: 2018
  2. CYSTADANE [Suspect]
     Active Substance: BETAINE
     Indication: Homocystinuria
     Dosage: 1.5 GRAM, QD
     Dates: start: 20180523, end: 2019
  3. CYSTADANE [Suspect]
     Active Substance: BETAINE
     Dosage: 2.3 GRAM, QD
     Dates: start: 20190107, end: 2019
  4. CYSTADANE [Suspect]
     Active Substance: BETAINE
     Dosage: 2.4 GRAM, QD
     Dates: start: 20190405, end: 2019
  5. CYSTADANE [Suspect]
     Active Substance: BETAINE
     Dosage: 2.3 GRAM, QD
     Dates: start: 20190619, end: 2019
  6. RIBOFLAVIN BUTYRATE [Concomitant]
     Indication: Disease complication
     Dosage: 2 MILLIGRAM
     Route: 048
  7. METHYLCOBALAMIN [Concomitant]
     Active Substance: METHYLCOBALAMIN
     Indication: Disease complication
     Dosage: 1 MILLIGRAM
     Route: 048
  8. LEVOCARNITINE [Concomitant]
     Active Substance: LEVOCARNITINE
     Indication: Disease complication
     Dosage: 50 MILLIGRAM
     Route: 048
  9. VITAMIN B6 [Concomitant]
     Active Substance: PYRIDOXINE HYDROCHLORIDE
     Indication: Disease complication
     Dosage: 30 MILLIGRAM
     Route: 048
  10. FOLIC ACID [Concomitant]
     Active Substance: FOLIC ACID
     Indication: Disease complication
     Dosage: 2.5 MILLIGRAM
     Route: 048
  11. AMMONIUM GLYCYRRHIZATE\GLYCINE\RACEMETHIONINE [Concomitant]
     Active Substance: AMMONIUM GLYCYRRHIZATE\GLYCINE\RACEMETHIONINE
     Indication: Disease complication
     Dosage: 25 MILLIGRAM
     Route: 048

REACTIONS (3)
  - Hyperlipidaemia [Not Recovered/Not Resolved]
  - Weight increased [Unknown]
  - Product use issue [Recovered/Resolved]

NARRATIVE: CASE EVENT DATE: 20180101
